FAERS Safety Report 14924806 (Version 1)
Quarter: 2018Q2

REPORT INFORMATION
  Report Type: Spontaneous
  Country: US (occurrence: US)
  Receive Date: 20180522
  Receipt Date: 20180522
  Transmission Date: 20180711
  Serious: No
  Sender: FDA-Public Use
  Company Number: US-TARO-2017TAR00840

PATIENT
  Age: 43 Year
  Sex: Female
  Weight: 72.56 kg

DRUGS (2)
  1. CLOTRIMAZOLE VAGINAL CREAM USP 2% 3 DAY [Suspect]
     Active Substance: CLOTRIMAZOLE
     Indication: VULVOVAGINAL MYCOTIC INFECTION
     Dosage: 1 DOSAGE UNITS, 1X/DAY
     Route: 067
     Dates: start: 20170929, end: 20171001
  2. UNSPECIFIED MEDICATION FOR BLADDER CONTROL [Concomitant]

REACTIONS (4)
  - Vaginal haemorrhage [Recovered/Resolved]
  - Application site discomfort [Recovered/Resolved]
  - Vaginal laceration [Recovered/Resolved]
  - Product quality issue [Recovered/Resolved]

NARRATIVE: CASE EVENT DATE: 20170929
